FAERS Safety Report 10081254 (Version 1)
Quarter: 2014Q2

REPORT INFORMATION
  Report Type: Spontaneous
  Country: US (occurrence: US)
  Receive Date: 20140416
  Receipt Date: 20140416
  Transmission Date: 20141212
  Serious: No
  Sender: FDA-Public Use
  Company Number: US-PFIZER INC-2014103950

PATIENT
  Age: 52 Year
  Sex: Female
  Weight: 63.49 kg

DRUGS (2)
  1. LYRICA [Suspect]
     Indication: FACIAL PAIN
     Dosage: 50 MG, 3X/DAY
     Dates: start: 20140410
  2. TECFIDERA [Concomitant]
     Indication: MULTIPLE SCLEROSIS
     Dosage: 240 MG, 2X/DAY

REACTIONS (1)
  - Drug ineffective [Unknown]
